FAERS Safety Report 16837444 (Version 1)
Quarter: 2019Q3

REPORT INFORMATION
  Report Type: Report from Study
  Country: CA (occurrence: CA)
  Receive Date: 20190923
  Receipt Date: 20190923
  Transmission Date: 20191005
  Serious: Yes (Hospitalization)
  Sender: FDA-Public Use
  Company Number: CA-BEH-2019107049

PATIENT
  Age: 50 Year
  Sex: Male

DRUGS (2)
  1. HAEMATE P [Suspect]
     Active Substance: ANTIHEMOPHILIC FACTOR HUMAN
     Indication: VON WILLEBRAND^S DISEASE
     Dosage: 5000 RCOF DAILY, QD
     Route: 042
  2. HAEMATE P [Suspect]
     Active Substance: ANTIHEMOPHILIC FACTOR HUMAN
     Indication: VON WILLEBRAND^S DISEASE
     Dosage: 5000 RCOF DAILY, QD
     Route: 042

REACTIONS (1)
  - Haemorrhage [Not Recovered/Not Resolved]

NARRATIVE: CASE EVENT DATE: 201909
